FAERS Safety Report 4659663-8 (Version None)
Quarter: 2005Q2

REPORT INFORMATION
  Report Type: 
  Country: None (occurrence: None)
  Receive Date: 20050502
  Receipt Date: 20050118
  Transmission Date: 20051028
  Serious: No
  Sender: FDA-Public Use
  Company Number: 200417712US

PATIENT
  Age: 49 Year
  Sex: Female
  Weight: 70.4 kg

DRUGS (5)
  1. KETEK [Suspect]
     Indication: SINUSITIS
     Dosage: 400 MG ONCE
     Dates: start: 20041005, end: 20041005
  2. RABEPRAZOLE SODIUM (ACIPHEX) [Concomitant]
  3. FLUTICASONE PROPIONATE (FLOVENT) [Concomitant]
  4. ALLEGRA [Concomitant]
  5. MONTELUKAST SODIUM [Concomitant]

REACTIONS (4)
  - CHEST DISCOMFORT [None]
  - DIZZINESS [None]
  - LETHARGY [None]
  - PALPITATIONS [None]
